FAERS Safety Report 10382810 (Version 2)
Quarter: 2019Q1

REPORT INFORMATION
  Report Type: Spontaneous
  Country: US (occurrence: US)
  Receive Date: 20140813
  Receipt Date: 20190227
  Transmission Date: 20190417
  Serious: No
  Sender: FDA-Public Use
  Company Number: US-SA-2013SA112546

PATIENT
  Age: 34 Year
  Sex: Male
  Weight: 77.3 kg

DRUGS (1)
  1. FABRAZYME [Suspect]
     Active Substance: AGALSIDASE BETA
     Indication: FABRY^S DISEASE
     Dosage: .9 MG/KG,QOW
     Route: 042
     Dates: start: 201203

REACTIONS (1)
  - Chills [Not Recovered/Not Resolved]
